FAERS Safety Report 9842113 (Version 1)
Quarter: 2014Q1

REPORT INFORMATION
  Report Type: Spontaneous
  Country: US (occurrence: US)
  Receive Date: 20140124
  Receipt Date: 20140124
  Transmission Date: 20141002
  Serious: Yes (Other)
  Sender: FDA-Public Use
  Company Number: US-PFIZER INC-2014020507

PATIENT
  Age: 64 Year
  Sex: Male
  Weight: 99.77 kg

DRUGS (4)
  1. LYRICA [Suspect]
     Indication: NEUROPATHY PERIPHERAL
     Dosage: 150 MG, 2X/DAY
     Route: 048
  2. CYMBALTA [Concomitant]
     Dosage: UNK
  3. MOTRIN [Concomitant]
     Dosage: UNK
  4. PERCOCET [Concomitant]
     Dosage: 5/325 MG, UNK

REACTIONS (8)
  - Off label use [Unknown]
  - Spinal cord disorder [Unknown]
  - Osteoarthritis [Unknown]
  - Gait disturbance [Unknown]
  - Arthritis [Unknown]
  - Arthropathy [Unknown]
  - Constipation [Unknown]
  - Dry mouth [Unknown]
